FAERS Safety Report 10264948 (Version 1)
Quarter: 2014Q2

REPORT INFORMATION
  Report Type: Spontaneous
  Country: US (occurrence: None)
  Receive Date: 20140625
  Receipt Date: 20140625
  Transmission Date: 20141212
  Serious: Yes (Other)
  Sender: FDA-Public Use
  Company Number: None

PATIENT
  Age: 60 Year
  Sex: Male
  Weight: 75.2 kg

DRUGS (1)
  1. PAMIDRONATE [Suspect]
     Indication: BONE NEOPLASM
     Route: 042
     Dates: start: 20140131, end: 20140131

REACTIONS (3)
  - Pain [None]
  - Back pain [None]
  - Arthralgia [None]
